FAERS Safety Report 7003817-2 (Version None)
Quarter: 2010Q3

REPORT INFORMATION
  Report Type: 
  Country: None (occurrence: None)
  Receive Date: 20100920
  Receipt Date: 20091203
  Transmission Date: 20110219
  Serious: No
  Sender: FDA-Public Use
  Company Number: US-WYE-H12521309

PATIENT
  Sex: Female

DRUGS (6)
  1. PRISTIQ [Suspect]
     Indication: DEPRESSION
     Route: 048
     Dates: start: 20090701, end: 20091130
  2. PRISTIQ [Suspect]
     Route: 048
     Dates: start: 20091203
  3. XANAX [Concomitant]
  4. ORTHO TRI-CYCLEN [Concomitant]
  5. COREG [Concomitant]
  6. VASOTEC [Concomitant]

REACTIONS (3)
  - CONFUSIONAL STATE [None]
  - DIZZINESS [None]
  - DRUG WITHDRAWAL SYNDROME [None]
